FAERS Safety Report 8408304-2 (Version None)
Quarter: 2012Q2

REPORT INFORMATION
  Report Type: 
  Country: None (occurrence: None)
  Receive Date: 20120323
  Receipt Date: 20111223
  Transmission Date: 20120825
  Serious: Yes (Other)
  Sender: FDA-Public Use
  Company Number: 163-21880-11114168

PATIENT
  Age: 70 Year
  Sex: Male

DRUGS (4)
  1. RITUXAN [Concomitant]
  2. PROCRIT [Concomitant]
  3. IVIG (IMMUNOGLOBULIN) [Concomitant]
  4. REVLIMID [Suspect]
     Indication: MYELODYSPLASTIC SYNDROME
     Dosage: 5 MG, 1 IN 1 D, PO
     Route: 048
     Dates: start: 20110613, end: 20111116

REACTIONS (3)
  - MYELODYSPLASTIC SYNDROME TRANSFORMATION [None]
  - WHITE BLOOD CELL COUNT DECREASED [None]
  - RED BLOOD CELL COUNT DECREASED [None]
